FAERS Safety Report 7085656-X (Version None)
Quarter: 2010Q4

REPORT INFORMATION
  Report Type: 
  Country: None (occurrence: None)
  Receive Date: 20101105
  Receipt Date: 20101102
  Transmission Date: 20110411
  Serious: Yes (Death)
  Sender: FDA-Public Use
  Company Number: US-PFIZER INC-2010033767

PATIENT
  Sex: Male
  Weight: 183.25 kg

DRUGS (3)
  1. SUTENT [Suspect]
     Indication: METASTATIC RENAL CELL CARCINOMA
     Dosage: 50 MG, 1X/DAY, CYCLE 4/2
     Route: 048
     Dates: start: 20100223
  2. NEXIUM [Concomitant]
  3. CYMBALTA [Concomitant]

REACTIONS (1)
  - OBESITY [None]
